FAERS Safety Report 11641866 (Version 1)
Quarter: 2015Q4

REPORT INFORMATION
  Report Type: Spontaneous
  Country: JP (occurrence: JP)
  Receive Date: 20151019
  Receipt Date: 20151019
  Transmission Date: 20160304
  Serious: Yes (Hospitalization)
  Sender: FDA-Public Use
  Company Number: JP-BANPHARM-20154303

PATIENT
  Age: 46 Year
  Sex: Female

DRUGS (1)
  1. ZONISAMIDE UNKNOWN PRODUCT [Suspect]
     Active Substance: ZONISAMIDE

REACTIONS (2)
  - Drug reaction with eosinophilia and systemic symptoms [Recovered/Resolved]
  - Eosinophilic pneumonia [Recovered/Resolved]
